FAERS Safety Report 7164426-8 (Version None)
Quarter: 2010Q4

REPORT INFORMATION
  Report Type: 
  Country: None (occurrence: None)
  Receive Date: 20101215
  Receipt Date: 20101209
  Transmission Date: 20110411
  Serious: Yes (Hospitalization)
  Sender: FDA-Public Use
  Company Number: DE-TEVA-259167GER

PATIENT
  Age: 24 Year
  Sex: Male
  Weight: 100 kg

DRUGS (1)
  1. IBUPROFEN (IBUPROF 800 VON CT) [Suspect]
     Indication: INTERCOSTAL NEURALGIA
     Route: 048
     Dates: start: 20101122, end: 20101122

REACTIONS (2)
  - HEPATIC LESION [None]
  - OVERDOSE [None]
